FAERS Safety Report 13727229 (Version 1)
Quarter: 2017Q3

REPORT INFORMATION
  Report Type: Report from Study
  Country: US (occurrence: US)
  Receive Date: 20170707
  Receipt Date: 20170707
  Transmission Date: 20171127
  Serious: Yes (Hospitalization)
  Sender: FDA-Public Use
  Company Number: US-BAYER-2017-119664

PATIENT
  Age: 79 Year
  Sex: Female

DRUGS (1)
  1. STIVARGA [Suspect]
     Active Substance: REGORAFENIB
     Indication: COLORECTAL CANCER
     Dosage: 160 MG DAILY
     Route: 048
     Dates: start: 20170613, end: 20170623

REACTIONS (8)
  - Dry mouth [None]
  - Dyspnoea [Recovering/Resolving]
  - Rash [None]
  - Pyrexia [None]
  - Fatigue [None]
  - Chills [None]
  - Blood pressure increased [None]
  - Oral pain [None]

NARRATIVE: CASE EVENT DATE: 201706
